FAERS Safety Report 6902039-0 (Version None)
Quarter: 2010Q3

REPORT INFORMATION
  Report Type: 
  Country: None (occurrence: None)
  Receive Date: 20100803
  Receipt Date: 20080413
  Transmission Date: 20110219
  Serious: No
  Sender: FDA-Public Use
  Company Number: US-PFIZER INC-2008032893

PATIENT
  Sex: Female
  Weight: 76.8 kg

DRUGS (4)
  1. LYRICA [Suspect]
     Indication: DIABETIC NEUROPATHY
     Dates: start: 20080403
  2. LUNESTA [Concomitant]
  3. ATENOLOL [Concomitant]
  4. IBANDRONATE SODIUM [Concomitant]

REACTIONS (1)
  - WEIGHT INCREASED [None]
